FAERS Safety Report 6167676-2 (Version None)
Quarter: 2009Q2

REPORT INFORMATION
  Report Type: 
  Country: None (occurrence: None)
  Receive Date: 20090424
  Receipt Date: 20090422
  Transmission Date: 20091009
  Serious: Yes (Other)
  Sender: FDA-Public Use
  Company Number: BR-ABBOTT-09P-020-0564993-00

PATIENT
  Sex: Male
  Weight: 54 kg

DRUGS (6)
  1. HUMIRA [Suspect]
     Indication: RHEUMATOID ARTHRITIS
     Route: 058
     Dates: start: 20080524, end: 20090401
  2. HUMIRA [Suspect]
     Indication: ANKYLOSING SPONDYLITIS
  3. INDOMETHACIN [Concomitant]
     Indication: RHEUMATOID ARTHRITIS
     Route: 048
     Dates: start: 20070101
  4. INDOMETHACIN [Concomitant]
     Indication: ANKYLOSING SPONDYLITIS
  5. DEFLAZACORT [Concomitant]
     Indication: ANKYLOSING SPONDYLITIS
     Route: 048
     Dates: start: 19990101
  6. DEFLAZACORT [Concomitant]
     Indication: RHEUMATOID ARTHRITIS

REACTIONS (8)
  - ANAEMIA [None]
  - ANOREXIA [None]
  - ASTHENIA [None]
  - DEPRESSED MOOD [None]
  - HEART RATE INCREASED [None]
  - MALAISE [None]
  - PAIN IN EXTREMITY [None]
  - SEPSIS [None]
